FAERS Safety Report 20144822 (Version 2)
Quarter: 2021Q4

REPORT INFORMATION
  Report Type: Spontaneous
  Country: US (occurrence: US)
  Receive Date: 20211203
  Receipt Date: 20211220
  Transmission Date: 20220303
  Serious: No
  Sender: FDA-Public Use
  Company Number: US-LUPIN PHARMACEUTICALS INC.-2021-23480

PATIENT
  Sex: Female
  Weight: 6.349 kg

DRUGS (1)
  1. FAMOTIDINE [Suspect]
     Active Substance: FAMOTIDINE
     Indication: Product used for unknown indication
     Dosage: 0.6 MILLILITER, BID
     Route: 048
     Dates: end: 20211115

REACTIONS (1)
  - Allergic reaction to excipient [Recovered/Resolved]
